FAERS Safety Report 4998205-4 (Version None)
Quarter: 2006Q2

REPORT INFORMATION
  Report Type: 
  Country: None (occurrence: None)
  Receive Date: 20060510
  Receipt Date: 20050719
  Transmission Date: 20061013
  Serious: Yes (Hospitalization)
  Sender: FDA-Public Use
  Company Number: US-MERCK-0507USA03129

PATIENT
  Sex: Female
  Weight: 56 kg

DRUGS (2)
  1. VIOXX [Suspect]
     Indication: BACK PAIN
     Route: 048
     Dates: start: 19990501, end: 20040301
  2. VIOXX [Suspect]
     Indication: TENDONITIS
     Route: 048
     Dates: start: 19990501, end: 20040301

REACTIONS (9)
  - ASTHENIA [None]
  - CHEST PAIN [None]
  - DEPRESSION [None]
  - FATIGUE [None]
  - HEPATITIS B [None]
  - MOBILITY DECREASED [None]
  - MYOCARDIAL INFARCTION [None]
  - SEXUAL DYSFUNCTION [None]
  - SPINAL FUSION SURGERY [None]
